FAERS Safety Report 7729537-4 (Version None)
Quarter: 2011Q3

REPORT INFORMATION
  Report Type: 
  Country: None (occurrence: None)
  Receive Date: 20110906
  Receipt Date: 20110826
  Transmission Date: 20111222
  Serious: Yes (Other)
  Sender: FDA-Public Use
  Company Number: PHHY2011AU76709

PATIENT
  Age: 58 Year
  Sex: Female

DRUGS (2)
  1. CARBOPLATIN [Suspect]
     Indication: ENDOMETRIAL CANCER METASTATIC
     Dosage: 600 MG, UNK
     Route: 042
  2. PACLITAXEL [Suspect]
     Indication: ENDOMETRIAL CANCER METASTATIC
     Dosage: 320 MG, UNK
     Route: 042

REACTIONS (11)
  - ARTHRALGIA [None]
  - C-REACTIVE PROTEIN INCREASED [None]
  - PYOMYOSITIS [None]
  - DECREASED APPETITE [None]
  - JOINT SWELLING [None]
  - IMMOBILE [None]
  - STAPHYLOCOCCAL INFECTION [None]
  - FLUID RETENTION [None]
  - LETHARGY [None]
  - PYREXIA [None]
  - OEDEMA [None]
